FAERS Safety Report 10690251 (Version 2)
Quarter: 2015Q1

REPORT INFORMATION
  Report Type: Report from Study
  Country: DE (occurrence: DE)
  Receive Date: 20150105
  Receipt Date: 20150120
  Transmission Date: 20150720
  Serious: Yes (Hospitalization)
  Sender: FDA-Public Use
  Company Number: DE-BEH-2014047553

PATIENT
  Age: 79 Year
  Sex: Male
  Weight: 88 kg

DRUGS (6)
  1. GABAPENTIN. [Concomitant]
     Active Substance: GABAPENTIN
     Route: 048
  2. PRIVIGEN [Suspect]
     Active Substance: HUMAN IMMUNOGLOBULIN G
     Indication: SECONDARY IMMUNODEFICIENCY
     Dosage: INFUSION RATE: MINIMUM 1.66 ML/MIN; MAXIMUM 1.66 ML/MIN
     Dates: start: 20131111, end: 20131111
  3. PRIVIGEN [Suspect]
     Active Substance: HUMAN IMMUNOGLOBULIN G
     Dosage: INFUSION RATE: MINIMUM 1.66 ML/MIN; MAXIMUM 1.66 ML/MIN
     Dates: start: 20131014, end: 20131014
  4. PRIVIGEN [Suspect]
     Active Substance: HUMAN IMMUNOGLOBULIN G
     Dosage: INFUSION RATE: MINIMUM 1.66 ML/MIN; MAXIMUM 1.66 ML/MIN
     Dates: start: 20131216, end: 20131216
  5. PRIVIGEN [Suspect]
     Active Substance: HUMAN IMMUNOGLOBULIN G
     Indication: CHRONIC LYMPHOCYTIC LEUKAEMIA
     Dosage: INFUSION RATE: MINIMUM 1.66 ML/MIN; MAXIMUM 1.66 ML/MIN
     Dates: start: 20130916, end: 20130916
  6. PRIVIGEN [Suspect]
     Active Substance: HUMAN IMMUNOGLOBULIN G
     Indication: INFECTION
     Dosage: INFUSION RATE: MINIMUM 1.66 ML/MIN; MAXIMUM 1.66 ML/MIN
     Dates: start: 20140113, end: 20140113

REACTIONS (1)
  - Pneumonia [Recovered/Resolved]

NARRATIVE: CASE EVENT DATE: 20140126
